FAERS Safety Report 11088525 (Version 2)
Quarter: 2015Q2

REPORT INFORMATION
  Report Type: Spontaneous
  Country: US (occurrence: US)
  Receive Date: 20150504
  Receipt Date: 20150511
  Transmission Date: 20150821
  Serious: No
  Sender: FDA-Public Use
  Company Number: US-PFIZER INC-2015147000

PATIENT
  Sex: Female

DRUGS (2)
  1. CLINDAMYCIN HCL [Suspect]
     Active Substance: CLINDAMYCIN HYDROCHLORIDE
     Dosage: 150 MG, UNK
  2. PREDNISONE. [Interacting]
     Active Substance: PREDNISONE
     Dosage: UNK

REACTIONS (4)
  - Drug interaction [Unknown]
  - Lip swelling [Unknown]
  - Paraesthesia oral [Unknown]
  - Blister [Unknown]
